FAERS Safety Report 8745999 (Version 2)
Quarter: 2012Q4

REPORT INFORMATION
  Report Type: Report from Study
  Country: US (occurrence: US)
  Receive Date: 20120827
  Receipt Date: 20121015
  Transmission Date: 20130627
  Serious: Yes (Other)
  Sender: FDA-Public Use
  Company Number: US-JNJFOC-20120809961

PATIENT
  Age: 25 None
  Sex: Female
  Weight: 81.65 kg

DRUGS (3)
  1. REMICADE [Suspect]
     Indication: HIDRADENITIS
     Route: 042
     Dates: start: 201207, end: 201208
  2. ^INHALERS FOR ASTHMA^ [Concomitant]
     Indication: ASTHMA
     Route: 045
  3. DOXYCYCLINE [Concomitant]
     Indication: HIDRADENITIS
     Route: 065

REACTIONS (6)
  - Urticaria [Not Recovered/Not Resolved]
  - Fatigue [Not Recovered/Not Resolved]
  - Menometrorrhagia [Recovered/Resolved]
  - Menstrual disorder [Not Recovered/Not Resolved]
  - Drug ineffective [Unknown]
  - Hidradenitis [Not Recovered/Not Resolved]
